FAERS Safety Report 16864885 (Version 1)
Quarter: 2019Q3

REPORT INFORMATION
  Report Type: Spontaneous
  Country: DE (occurrence: DE)
  Receive Date: 20190929
  Receipt Date: 20190929
  Transmission Date: 20191005
  Serious: Yes (Congenital Anomaly, Other)
  Sender: FDA-Public Use
  Company Number: PHHY2019DE224856

PATIENT
  Age: 1 Day
  Sex: Female
  Weight: 3.46 kg

DRUGS (10)
  1. CITALOPRAM [Suspect]
     Active Substance: CITALOPRAM HYDROBROMIDE
     Indication: FOETAL EXPOSURE DURING PREGNANCY
     Dosage: 20 MG, QD (20 [MG/D (20-0-0) ])
     Route: 064
     Dates: start: 20170922, end: 20180626
  2. HCT DEXCEL [Suspect]
     Active Substance: HYDROCHLOROTHIAZIDE
     Indication: FOETAL EXPOSURE DURING PREGNANCY
     Dosage: 12.5 MG, QD (12.5 [MG/D (12.5-0-0) ])
     Route: 064
     Dates: start: 20170922, end: 20180626
  3. VIVIDRIN AKUT [Concomitant]
     Indication: FOETAL EXPOSURE DURING PREGNANCY
     Dosage: UNK (ONLY IF REQUIRED)
     Route: 064
  4. METOHEXAL [Suspect]
     Active Substance: METOPROLOL
     Indication: FOETAL EXPOSURE DURING PREGNANCY
     Dosage: 142.5 MG, QD (142.5 [MG/D (95-0-47.5)])
     Route: 064
  5. VIGANTOLETTEN [Concomitant]
     Active Substance: CHOLECALCIFEROL
     Indication: FOETAL EXPOSURE DURING PREGNANCY
     Dosage: 1000 OT, QD (1000 [I.E./D ])
     Route: 064
  6. NIFEDIPINE. [Suspect]
     Active Substance: NIFEDIPINE
     Indication: FOETAL EXPOSURE DURING PREGNANCY
     Dosage: 40 MG, QD (40 [MG/D (20-0-20) ])
     Route: 064
  7. AMLODIPINE [Suspect]
     Active Substance: AMLODIPINE BESYLATE
     Indication: FOETAL EXPOSURE DURING PREGNANCY
     Dosage: 10 MG, QD (10 [MG/D])
     Route: 064
  8. ECURAL [Concomitant]
     Active Substance: MOMETASONE
     Indication: FOETAL EXPOSURE DURING PREGNANCY
     Dosage: UNK (ONTO VERY SMALL AREA)
     Route: 064
  9. L-THYROXINE [Concomitant]
     Active Substance: LEVOTHYROXINE
     Indication: FOETAL EXPOSURE DURING PREGNANCY
     Dosage: 100 G, QD (100 [?G/D (BIS 50 ?G/D) ])
     Route: 064
  10. SALBUTAMOL [Concomitant]
     Active Substance: ALBUTEROL
     Indication: FOETAL EXPOSURE DURING PREGNANCY
     Dosage: UNK (VERY SELDOM, ONLY IF REQUIRED. PROBABLY EVERY 4 TO 5 WEEKS ONCE.)
     Route: 064

REACTIONS (3)
  - Atrial septal defect [Not Recovered/Not Resolved]
  - Foetal exposure during pregnancy [Unknown]
  - Arrhythmia neonatal [Recovered/Resolved]

NARRATIVE: CASE EVENT DATE: 20180626
